FAERS Safety Report 5897961-0 (Version None)
Quarter: 2008Q3

REPORT INFORMATION
  Report Type: 
  Country: None (occurrence: None)
  Receive Date: 20080925
  Receipt Date: 20080916
  Transmission Date: 20090109
  Serious: Yes (Hospitalization)
  Sender: FDA-Public Use
  Company Number: B0531452B

PATIENT
  Age: 76 Year
  Sex: Female
  Weight: 58 kg

DRUGS (8)
  1. TOPOTECAN [Suspect]
     Indication: OVARIAN CANCER
     Dosage: 5.3MG PER DAY
     Route: 042
     Dates: start: 20080701, end: 20080723
  2. LAPATINIB [Suspect]
     Indication: OVARIAN CANCER
     Dosage: 1000MG PER DAY
     Route: 048
     Dates: start: 20080701, end: 20080727
  3. ANTIEMETICS [Concomitant]
     Indication: VOMITING
     Route: 048
     Dates: start: 20080714
  4. ESOMEPRAZOLE [Concomitant]
     Route: 048
     Dates: start: 20080805
  5. SPIRONOLACTONE [Concomitant]
     Route: 048
     Dates: start: 20080801, end: 20080811
  6. OCTREOTIDE ACETATE [Concomitant]
     Indication: INTESTINAL OBSTRUCTION
     Route: 048
     Dates: start: 20080814
  7. MORPHINE SULFATE INJ [Concomitant]
     Route: 042
     Dates: start: 20080831
  8. SOLU-MEDROL [Concomitant]
     Dates: start: 20080822

REACTIONS (1)
  - ANOREXIA [None]
